FAERS Safety Report 6837505-X (Version None)
Quarter: 2010Q3

REPORT INFORMATION
  Report Type: 
  Country: None (occurrence: None)
  Receive Date: 20100713
  Receipt Date: 20070514
  Transmission Date: 20110219
  Serious: No
  Sender: FDA-Public Use
  Company Number: US-PFIZER INC-2007040107

PATIENT
  Sex: Female

DRUGS (2)
  1. CHANTIX [Suspect]
     Dates: start: 20070201
  2. PROZAC [Concomitant]
     Indication: DEPRESSION

REACTIONS (3)
  - DEPRESSION [None]
  - FLATULENCE [None]
  - SOMNOLENCE [None]
